FAERS Safety Report 19646254 (Version 2)
Quarter: 2021Q4

REPORT INFORMATION
  Report Type: Report from Study
  Country: FR (occurrence: FR)
  Receive Date: 20210802
  Receipt Date: 20211108
  Transmission Date: 20220303
  Serious: Yes (Hospitalization, Other)
  Sender: FDA-Public Use
  Company Number: FR-TAKEDA-FR201842514

PATIENT
  Age: 72 Year
  Sex: Male
  Weight: 49 kg

DRUGS (26)
  1. TEDUGLUTIDE [Suspect]
     Active Substance: TEDUGLUTIDE
     Indication: Short-bowel syndrome
     Dosage: 2.4 MG, 7 DOSES PER WEEK
     Route: 065
     Dates: start: 20160309, end: 20160719
  2. TEDUGLUTIDE [Suspect]
     Active Substance: TEDUGLUTIDE
     Indication: Short-bowel syndrome
     Dosage: 2.4 MG, 7 DOSES PER WEEK
     Route: 065
     Dates: start: 20160309, end: 20160719
  3. TEDUGLUTIDE [Suspect]
     Active Substance: TEDUGLUTIDE
     Indication: Short-bowel syndrome
     Dosage: 2.4 MG, 7 DOSES PER WEEK
     Route: 065
     Dates: start: 20160309, end: 20160719
  4. TEDUGLUTIDE [Suspect]
     Active Substance: TEDUGLUTIDE
     Indication: Short-bowel syndrome
     Dosage: 2.4 MG, 7 DOSES PER WEEK
     Route: 065
     Dates: start: 20160309, end: 20160719
  5. TEDUGLUTIDE [Suspect]
     Active Substance: TEDUGLUTIDE
     Dosage: 1.2 MG, 7 DOSES PER WEEK
     Route: 065
     Dates: start: 20160720, end: 20160802
  6. TEDUGLUTIDE [Suspect]
     Active Substance: TEDUGLUTIDE
     Dosage: 1.2 MG, 7 DOSES PER WEEK
     Route: 065
     Dates: start: 20160720, end: 20160802
  7. TEDUGLUTIDE [Suspect]
     Active Substance: TEDUGLUTIDE
     Dosage: 1.2 MG, 7 DOSES PER WEEK
     Route: 065
     Dates: start: 20160720, end: 20160802
  8. TEDUGLUTIDE [Suspect]
     Active Substance: TEDUGLUTIDE
     Dosage: 1.2 MG, 7 DOSES PER WEEK
     Route: 065
     Dates: start: 20160720, end: 20160802
  9. TEDUGLUTIDE [Suspect]
     Active Substance: TEDUGLUTIDE
     Dosage: 2.25 MG, 7 DOSES PER WEEK
     Route: 065
     Dates: start: 20160803, end: 20160904
  10. TEDUGLUTIDE [Suspect]
     Active Substance: TEDUGLUTIDE
     Dosage: 2.25 MG, 7 DOSES PER WEEK
     Route: 065
     Dates: start: 20160803, end: 20160904
  11. TEDUGLUTIDE [Suspect]
     Active Substance: TEDUGLUTIDE
     Dosage: 2.25 MG, 7 DOSES PER WEEK
     Route: 065
     Dates: start: 20160803, end: 20160904
  12. TEDUGLUTIDE [Suspect]
     Active Substance: TEDUGLUTIDE
     Dosage: 2.25 MG, 7 DOSES PER WEEK
     Route: 065
     Dates: start: 20160803, end: 20160904
  13. TEDUGLUTIDE [Suspect]
     Active Substance: TEDUGLUTIDE
     Dosage: 2.4 MG, 7 DOSES PER WEEK
     Route: 065
     Dates: start: 20160905, end: 20180220
  14. TEDUGLUTIDE [Suspect]
     Active Substance: TEDUGLUTIDE
     Dosage: 2.4 MG, 7 DOSES PER WEEK
     Route: 065
     Dates: start: 20160905, end: 20180220
  15. TEDUGLUTIDE [Suspect]
     Active Substance: TEDUGLUTIDE
     Dosage: 2.4 MG, 7 DOSES PER WEEK
     Route: 065
     Dates: start: 20160905, end: 20180220
  16. TEDUGLUTIDE [Suspect]
     Active Substance: TEDUGLUTIDE
     Dosage: 2.4 MG, 7 DOSES PER WEEK
     Route: 065
     Dates: start: 20160905, end: 20180220
  17. TEDUGLUTIDE [Suspect]
     Active Substance: TEDUGLUTIDE
     Dosage: 2.4 MG, 7 DOSE PER WEEK
     Route: 065
     Dates: start: 20180226, end: 20190521
  18. TEDUGLUTIDE [Suspect]
     Active Substance: TEDUGLUTIDE
     Dosage: 2.4 MG, 7 DOSE PER WEEK
     Route: 065
     Dates: start: 20180226, end: 20190521
  19. TEDUGLUTIDE [Suspect]
     Active Substance: TEDUGLUTIDE
     Dosage: 2.4 MG, 7 DOSE PER WEEK
     Route: 065
     Dates: start: 20180226, end: 20190521
  20. TEDUGLUTIDE [Suspect]
     Active Substance: TEDUGLUTIDE
     Dosage: 2.4 MG, 7 DOSE PER WEEK
     Route: 065
     Dates: start: 20180226, end: 20190521
  21. LINEZOLID [Concomitant]
     Active Substance: LINEZOLID
     Indication: Device related sepsis
  22. VANCOMYCIN [Concomitant]
     Active Substance: VANCOMYCIN
     Indication: Device related sepsis
     Dosage: 999
     Route: 065
     Dates: start: 201904
  23. AMOXICILLIN\CLAVULANATE POTASSIUM [Concomitant]
     Active Substance: AMOXICILLIN\CLAVULANATE POTASSIUM
     Indication: Device related sepsis
     Route: 065
  24. LOPERAMIDE HYDROCHLORIDE [Concomitant]
     Active Substance: LOPERAMIDE HYDROCHLORIDE
     Indication: Prophylaxis
     Dosage: 4 MILLIGRAM, QID
     Route: 048
  25. LEVETIRACETAM [Concomitant]
     Active Substance: LEVETIRACETAM
     Indication: Generalised tonic-clonic seizure
     Dosage: 500 MILLIGRAM, BID
     Route: 065
     Dates: start: 20181114
  26. VALIUM [Concomitant]
     Active Substance: DIAZEPAM
     Indication: Generalised tonic-clonic seizure
     Dosage: 10 MILLIGRAM, QD
     Route: 058
     Dates: start: 20181114, end: 20181114

REACTIONS (2)
  - Device related infection [Recovered/Resolved]
  - Generalised tonic-clonic seizure [Recovered/Resolved]

NARRATIVE: CASE EVENT DATE: 20181029
